FAERS Safety Report 4299499-3 (Version None)
Quarter: 2004Q1

REPORT INFORMATION
  Report Type: 
  Country: None (occurrence: None)
  Receive Date: 20040217
  Receipt Date: 20040212
  Transmission Date: 20041129
  Serious: Yes (Death, Hospitalization, Other)
  Sender: FDA-Public Use
  Company Number: 200312874BCC

PATIENT
  Age: 78 Year
  Sex: Male
  Weight: 88.905 kg

DRUGS (12)
  1. ALEVE (CAPLET) [Suspect]
     Indication: BACK PAIN
     Dosage: 220 MG, BID, ORAL
     Route: 048
     Dates: start: 20030718
  2. VALIUM [Concomitant]
  3. PLAVIX [Concomitant]
  4. IMDUR [Concomitant]
  5. THEO-24 [Concomitant]
  6. COUMADIN [Concomitant]
  7. PREDNISONE [Concomitant]
  8. CLARINEX [Concomitant]
  9. LIPITOR [Concomitant]
  10. ALBUTEROL NEBULIZER TREATMENT [Concomitant]
  11. ISORDIL [Concomitant]
  12. SINGULAIR [Concomitant]

REACTIONS (18)
  - ABASIA [None]
  - ANAEMIA [None]
  - ASTHENIA [None]
  - CIRCULATORY COLLAPSE [None]
  - COAGULOPATHY [None]
  - COMA [None]
  - CONFUSIONAL STATE [None]
  - GASTRIC ULCER [None]
  - GASTROINTESTINAL DISORDER [None]
  - GASTROINTESTINAL HAEMORRHAGE [None]
  - HAEMORRHAGE [None]
  - HYPOTENSION [None]
  - PNEUMONIA [None]
  - RECTAL ULCER [None]
  - SPLEEN DISORDER [None]
  - THROMBOSIS [None]
  - ULCER [None]
  - WEIGHT DECREASED [None]
